FAERS Safety Report 8777944 (Version 1)
Quarter: 2012Q4

REPORT INFORMATION
  Report Type: 
  Country: US (occurrence: US)
  Receive Date: 20120911
  Receipt Date: 20120911
  Transmission Date: 20130627
  Serious: No
  Sender: FDA-Public Use
  Company Number: US-PFIZER INC-2012219192

PATIENT
  Age: 70 Year
  Sex: Female
  Weight: 113 kg

DRUGS (5)
  1. TOVIAZ [Suspect]
     Indication: HYPERTONIC BLADDER
     Dosage: 4 mg, 1x/day
     Dates: start: 20120819
  2. DITROPAN [Suspect]
     Indication: HYPERTONIC BLADDER
     Dosage: UNK, 2x/day
  3. METFORMIN [Concomitant]
     Indication: DIABETES MELLITUS
     Dosage: 500 mg, 2x/day
  4. GLYNASE [Concomitant]
     Indication: DIABETES MELLITUS
     Dosage: 3 mg, 2x/day
  5. ACTOS [Concomitant]
     Indication: DIABETES MELLITUS
     Dosage: 3 mg, 1x/day

REACTIONS (1)
  - Drug ineffective [Unknown]
